FAERS Safety Report 14102849 (Version 3)
Quarter: 2017Q4

REPORT INFORMATION
  Report Type: Spontaneous
  Country: JP (occurrence: JP)
  Receive Date: 20171018
  Receipt Date: 20171101
  Transmission Date: 20180321
  Serious: Yes (Other)
  Sender: FDA-Public Use
  Company Number: JP-GLAXOSMITHKLINE-JP2017JPN157266

PATIENT
  Sex: Male

DRUGS (6)
  1. LAMICTAL [Suspect]
     Active Substance: LAMOTRIGINE
     Dosage: 200 MG, 1D
     Route: 048
     Dates: start: 20170211
  2. CYMBALTA [Concomitant]
     Active Substance: DULOXETINE HYDROCHLORIDE
     Dosage: UNK
  3. LAMICTAL [Suspect]
     Active Substance: LAMOTRIGINE
     Dosage: UNK
     Route: 048
     Dates: start: 20160601, end: 20161224
  4. RESTAMIN [Concomitant]
     Active Substance: DIPHENHYDRAMINE
     Dosage: UNK
  5. GOODMIN [Concomitant]
     Active Substance: BROTIZOLAM
     Dosage: UNK
  6. LYRICA [Concomitant]
     Active Substance: PREGABALIN
     Dosage: UNK
     Dates: start: 20170220

REACTIONS (27)
  - Dizziness [Unknown]
  - Agitation [Unknown]
  - Tooth disorder [Unknown]
  - Mucous membrane disorder [Unknown]
  - Hallucination, auditory [Unknown]
  - Somatic symptom disorder [Not Recovered/Not Resolved]
  - Muscle disorder [Unknown]
  - Face oedema [Unknown]
  - Aptyalism [Unknown]
  - Somnolence [Unknown]
  - Anxiety [Unknown]
  - Paralysis [Unknown]
  - Discomfort [Unknown]
  - Hallucination [Unknown]
  - Diplopia [Unknown]
  - Suicidal ideation [Unknown]
  - Drug eruption [Unknown]
  - Paraesthesia [Unknown]
  - Ocular hyperaemia [Unknown]
  - Movement disorder [Unknown]
  - Pain [Unknown]
  - Headache [Unknown]
  - Sticky skin [Unknown]
  - Hypoaesthesia [Unknown]
  - Pyrexia [Unknown]
  - Oral disorder [Unknown]
  - Lip disorder [Unknown]
